FAERS Safety Report 12171534 (Version 2)
Quarter: 2016Q3

REPORT INFORMATION
  Report Type: Report from Study
  Country: BR (occurrence: BR)
  Receive Date: 20160311
  Receipt Date: 20160906
  Transmission Date: 20161109
  Serious: Yes (Other)
  Sender: FDA-Public Use
  Company Number: BR-JNJFOC-20160305564

PATIENT
  Age: 39 Year
  Sex: Female
  Weight: 65 kg

DRUGS (2)
  1. SIMPONI [Suspect]
     Active Substance: GOLIMUMAB
     Indication: RHEUMATOID ARTHRITIS
     Route: 058
     Dates: start: 20140528
  2. CELEBRA [Concomitant]
     Active Substance: CELECOXIB
     Route: 065

REACTIONS (4)
  - Injection site pain [Unknown]
  - Injection site haemorrhage [Unknown]
  - Infection [Unknown]
  - Pharyngitis [Unknown]

NARRATIVE: CASE EVENT DATE: 201608
